FAERS Safety Report 7535826-9 (Version None)
Quarter: 2011Q2

REPORT INFORMATION
  Report Type: 
  Country: None (occurrence: None)
  Receive Date: 20110602
  Receipt Date: 20110518
  Transmission Date: 20111010
  Serious: Yes (Other)
  Sender: FDA-Public Use
  Company Number: 2011AT000173

PATIENT
  Age: 46 Year
  Sex: Female

DRUGS (9)
  1. ASPIRIN [Concomitant]
  2. TRIAMTERENE [Concomitant]
  3. LEVOTHYROXINE SODIUM [Concomitant]
  4. TESTOSTERONE [Suspect]
     Indication: PRODUCT USED FOR UNKNOWN INDICATION
     Dosage: 25 MG; Q 12-16 WEEKS; SC
     Route: 058
     Dates: start: 20070101, end: 20080701
  5. FENOFIBRATE [Concomitant]
  6. VITAMIN D [Concomitant]
  7. ESTRADIOL [Suspect]
     Indication: PRODUCT USED FOR UNKNOWN INDICATION
     Dosage: 75 MG ;Q 12-16 WEEKS; SC
     Route: 058
     Dates: start: 20070101, end: 20080701
  8. OMEGA-3 MARINE TRIGLYCERIDES [Concomitant]
  9. HYDROCHLOROTHIAZIDE [Concomitant]

REACTIONS (4)
  - FOCAL NODULAR HYPERPLASIA [None]
  - HEPATIC STEATOSIS [None]
  - HYPERTRIGLYCERIDAEMIA [None]
  - BILIARY DYSKINESIA [None]
